FAERS Safety Report 7640781-7 (Version None)
Quarter: 2011Q3

REPORT INFORMATION
  Report Type: 
  Country: None (occurrence: None)
  Receive Date: 20110728
  Receipt Date: 20110714
  Transmission Date: 20111222
  Serious: Yes (Congenital Anomaly)
  Sender: FDA-Public Use
  Company Number: SE-ELI_LILLY_AND_COMPANY-SE201106004055

PATIENT

DRUGS (6)
  1. SERTRALINE HYDROCHLORIDE [Concomitant]
     Route: 064
  2. ZYPREXA [Suspect]
     Dosage: 20 MG, UNK
     Route: 064
  3. ZYPREXA [Suspect]
     Dosage: 20 MG, UNK
     Route: 064
  4. SERTRALINE HYDROCHLORIDE [Concomitant]
     Route: 064
  5. LERGIGAN [Concomitant]
     Dosage: 25 MG, UNK
     Route: 064
  6. LERGIGAN [Concomitant]
     Dosage: 25 MG, UNK
     Route: 064

REACTIONS (2)
  - CONGENITAL ANOMALY [None]
  - MATERNAL EXPOSURE DURING PREGNANCY [None]
